FAERS Safety Report 9390422 (Version 2)
Quarter: 2013Q3

REPORT INFORMATION
  Report Type: Report from Study
  Country: US (occurrence: US)
  Receive Date: 20130709
  Receipt Date: 20130724
  Transmission Date: 20140515
  Serious: Yes (Death)
  Sender: FDA-Public Use
  Company Number: PHEH2013US014426

PATIENT
  Age: 76 Year
  Sex: Male

DRUGS (7)
  1. GLEEVEC [Suspect]
     Dosage: 400 MG, DAILY
     Route: 048
     Dates: start: 20121226
  2. NIASPAN [Concomitant]
     Dosage: UNK UKN, UNK
  3. ATORVASTATIN [Concomitant]
     Dosage: UNK UKN, UNK
  4. METOPROLOL [Concomitant]
     Dosage: UNK UKN, UNK
  5. ASPIRIN [Concomitant]
     Dosage: UNK UKN, UNK
  6. AMLODIPINE [Concomitant]
     Dosage: UNK UKN, UNK
  7. PLAVIX [Concomitant]
     Dosage: UNK UKN, UNK

REACTIONS (1)
  - Death [Fatal]
